FAERS Safety Report 9026147 (Version 1)
Quarter: 2012Q4

REPORT INFORMATION
  Report Type: Spontaneous
  Country: US (occurrence: None)
  Receive Date: 20121213
  Receipt Date: 20121213
  Transmission Date: 20130627
  Serious: Yes (Life-Threatening, Hospitalization)
  Sender: FDA-Public Use
  Company Number: None

PATIENT
  Age: 74 Year
  Sex: Male

DRUGS (1)
  1. PRADAXA [Suspect]
     Dosage: 150 MG PO BID
     Route: 048
     Dates: start: 20120628, end: 20120716

REACTIONS (3)
  - Abdominal pain [None]
  - Faeces discoloured [None]
  - Gastrointestinal haemorrhage [None]
